FAERS Safety Report 8588225-5 (Version None)
Quarter: 2012Q3

REPORT INFORMATION
  Report Type: 
  Country: None (occurrence: None)
  Receive Date: 20120803
  Receipt Date: 20120803
  Transmission Date: 20120928
  Serious: Yes (Disabling, Other)
  Sender: FDA-Public Use
  Company Number: None

PATIENT
  Age: 50 Year
  Sex: Male
  Weight: 88.4514 kg

DRUGS (1)
  1. CLOBETASOL PROPIONATE (EMOLLIENT) [Suspect]
     Indication: ECZEMA
     Dosage: APPLY THIN FILM TWICE DAILY TOP
     Route: 061
     Dates: start: 20120612, end: 20120625

REACTIONS (4)
  - DIPLOPIA [None]
  - EYE DISORDER [None]
  - HALO VISION [None]
  - VISION BLURRED [None]
